FAERS Safety Report 7966489-6 (Version None)
Quarter: 2011Q4

REPORT INFORMATION
  Report Type: 
  Country: None (occurrence: None)
  Receive Date: 20111208
  Receipt Date: 20111125
  Transmission Date: 20120403
  Serious: Yes (Hospitalization)
  Sender: FDA-Public Use
  Company Number: DE-ROCHE-1016480

PATIENT
  Sex: Male
  Weight: 94.8 kg

DRUGS (8)
  1. MYCOPHENOLATE MOFETIL (CELLCEPT) [Suspect]
     Route: 048
     Dates: start: 20090916
  2. BASILIXIMAB [Suspect]
     Indication: RENAL TRANSPLANT
     Route: 042
     Dates: start: 20090807
  3. PREDNISOLONE [Suspect]
     Indication: RENAL TRANSPLANT
     Route: 048
     Dates: start: 20090806
  4. MYCOPHENOLATE MOFETIL (CELLCEPT) [Suspect]
     Route: 048
     Dates: start: 20090827, end: 20090915
  5. MYCOPHENOLATE MOFETIL (CELLCEPT) [Suspect]
     Indication: RENAL TRANSPLANT
     Route: 048
     Dates: start: 20090807, end: 20090822
  6. MYCOPHENOLATE MOFETIL (CELLCEPT) [Suspect]
     Route: 048
     Dates: start: 20090823
  7. TACROLIMUS [Suspect]
     Indication: RENAL TRANSPLANT
     Route: 048
     Dates: start: 20090806
  8. MYCOPHENOLATE MOFETIL (CELLCEPT) [Suspect]
     Route: 048
     Dates: start: 20090824, end: 20090826

REACTIONS (1)
  - TRANSPLANT REJECTION [None]
